FAERS Safety Report 6322873-8 (Version None)
Quarter: 2009Q3

REPORT INFORMATION
  Report Type: 
  Country: None (occurrence: None)
  Receive Date: 20090818
  Receipt Date: 20081201
  Transmission Date: 20100115
  Serious: Yes (Hospitalization)
  Sender: FDA-Public Use
  Company Number: MEDI-0007571

PATIENT
  Age: 4 Month
  Sex: Female
  Weight: 5.5792 kg

DRUGS (1)
  1. SYNAGIS [Suspect]
     Indication: PREMATURE BABY
     Dosage: 0.84 ML
     Dates: start: 20081119, end: 20081119

REACTIONS (3)
  - GASTROENTERITIS VIRAL [None]
  - HAEMATEMESIS [None]
  - HAEMATOCHEZIA [None]
